FAERS Safety Report 12811092 (Version 4)
Quarter: 2017Q2

REPORT INFORMATION
  Report Type: Spontaneous
  Country: US (occurrence: US)
  Receive Date: 20161005
  Receipt Date: 20170417
  Transmission Date: 20170830
  Serious: Yes (Hospitalization, Other)
  Sender: FDA-Public Use
  Company Number: US-BAYER-2016-107139

PATIENT
  Age: 37 Year
  Sex: Female

DRUGS (7)
  1. XARELTO [Suspect]
     Active Substance: RIVAROXABAN
     Indication: ATRIAL FIBRILLATION
     Dosage: UNK
     Route: 048
     Dates: start: 20130601, end: 20131105
  2. XARELTO [Suspect]
     Active Substance: RIVAROXABAN
     Indication: CEREBROVASCULAR ACCIDENT PROPHYLAXIS
     Dosage: 20 MG, QD
     Route: 048
     Dates: start: 20130916, end: 20131026
  3. ACETYLSALICYLIC ACID({=100 MG) [Suspect]
     Active Substance: ASPIRIN
     Indication: ANTIPHOSPHOLIPID ANTIBODIES POSITIVE
     Dosage: UNK
     Route: 048
  4. XARELTO [Suspect]
     Active Substance: RIVAROXABAN
     Indication: EMBOLISM
     Dosage: 20 MG, QD
     Route: 048
     Dates: start: 20140110, end: 20140217
  5. XARELTO [Suspect]
     Active Substance: RIVAROXABAN
     Indication: EMBOLISM
     Dosage: 20 MG, QD
     Route: 048
     Dates: start: 20140110, end: 20140217
  6. XARELTO [Suspect]
     Active Substance: RIVAROXABAN
     Indication: ATRIAL FIBRILLATION
     Dosage: 20 MG, QD
     Route: 048
     Dates: start: 20130916, end: 20131026
  7. XARELTO [Suspect]
     Active Substance: RIVAROXABAN
     Indication: CEREBROVASCULAR ACCIDENT PROPHYLAXIS

REACTIONS (7)
  - Epistaxis [Unknown]
  - Internal haemorrhage [Unknown]
  - Pulmonary embolism [Unknown]
  - Rectal haemorrhage [Unknown]
  - Myocardial infarction [Unknown]
  - Haemorrhagic stroke [Unknown]
  - Drug ineffective [Unknown]

NARRATIVE: CASE EVENT DATE: 201311
